FAERS Safety Report 5796215-0 (Version None)
Quarter: 2008Q2

REPORT INFORMATION
  Report Type: 
  Country: None (occurrence: None)
  Receive Date: 20080601
  Receipt Date: 20080131
  Transmission Date: 20081010
  Serious: No
  Sender: FDA-Public Use
  Company Number: US200802000594

PATIENT
  Age: 34 Year
  Sex: Female

DRUGS (3)
  1. BYETTA [Suspect]
     Dosage: 10 UG, SUBCUTANEOUS
     Route: 058
     Dates: start: 20060101
  2. EXENATIDE 10MCG PEN, DISPOSABLE DEVICE (EXENATIDE PEN (10 MCG)0 PEN,DI [Concomitant]
  3. EXENATIDE 10MCG PEN, DISPOSABLE DEVICE (EXENATIDE PEN (10 MCG)0 PEN,DI [Concomitant]

REACTIONS (1)
  - MALAISE [None]
